FAERS Safety Report 6820677-0 (Version None)
Quarter: 2010Q3

REPORT INFORMATION
  Report Type: 
  Country: None (occurrence: None)
  Receive Date: 20100707
  Receipt Date: 20100623
  Transmission Date: 20110219
  Serious: Yes (Life-Threatening, Hospitalization, Other)
  Sender: FDA-Public Use
  Company Number: JP-ELI_LILLY_AND_COMPANY-JP201006002655

PATIENT
  Age: 33 Year
  Sex: Male

DRUGS (6)
  1. ZYPREXA [Suspect]
     Route: 048
  2. ZYPREXA [Suspect]
     Dosage: 200 MG, DAILY (1/D)
     Route: 048
     Dates: start: 20100607, end: 20100607
  3. BEZATOL [Concomitant]
     Dosage: 2 D/F, DAILY (1/D)
     Route: 048
  4. ZYLORIC [Concomitant]
     Dosage: 1 D/F, DAILY (1/D)
     Route: 048
  5. MUCOSTA [Concomitant]
     Dosage: 3 D/F, DAILY (1/D)
     Route: 048
  6. EPL CAP. [Concomitant]
     Dosage: 6 D/F, DAILY (1/D)
     Route: 048

REACTIONS (3)
  - ALTERED STATE OF CONSCIOUSNESS [None]
  - OVERDOSE [None]
  - RESPIRATORY DEPRESSION [None]
